FAERS Safety Report 9559800 (Version 1)
Quarter: 2013Q3

REPORT INFORMATION
  Report Type: Spontaneous
  Country: US (occurrence: US)
  Receive Date: 20130927
  Receipt Date: 20130927
  Transmission Date: 20140515
  Serious: Yes (Other)
  Sender: FDA-Public Use
  Company Number: US-PFIZER INC-2013276254

PATIENT
  Age: 54 Year
  Sex: Female
  Weight: 54.42 kg

DRUGS (2)
  1. LYRICA [Suspect]
     Indication: PARAPLEGIA
     Dosage: 75 MG, SINGLE
     Dates: start: 20130923, end: 20130923
  2. VITAMIN E [Concomitant]
     Dosage: UNK

REACTIONS (12)
  - Off label use [Recovered/Resolved]
  - Hallucination [Unknown]
  - Hypersomnia [Unknown]
  - Euphoric mood [Unknown]
  - Somnolence [Unknown]
  - Fatigue [Unknown]
  - Headache [Not Recovered/Not Resolved]
  - Vision blurred [Recovering/Resolving]
  - Gait disturbance [Unknown]
  - Dizziness [Unknown]
  - Disturbance in attention [Not Recovered/Not Resolved]
  - Feeling abnormal [Unknown]
